FAERS Safety Report 9602329 (Version 2)
Quarter: 2014Q1

REPORT INFORMATION
  Report Type: Spontaneous
  Country: US (occurrence: US)
  Receive Date: 20131007
  Receipt Date: 20140218
  Transmission Date: 20141002
  Serious: Yes (Other)
  Sender: FDA-Public Use
  Company Number: US-GLAXOSMITHKLINE-A1032521A

PATIENT
  Age: 47 Year
  Sex: Female
  Weight: 63.6 kg

DRUGS (9)
  1. BENLYSTA [Suspect]
     Indication: SYSTEMIC LUPUS ERYTHEMATOSUS
     Dosage: 120MG CYCLIC
     Route: 065
     Dates: start: 20121010, end: 20130621
  2. ALPRAZOLAM [Concomitant]
  3. BENADRYL [Concomitant]
  4. FLUOCINONIDE CREAM [Concomitant]
  5. PLAQUENIL [Concomitant]
  6. PREDNISONE [Concomitant]
  7. PRO-AIR [Concomitant]
  8. PROMETHAZINE [Concomitant]
  9. TALWIN NX [Concomitant]

REACTIONS (8)
  - Stent placement [Unknown]
  - Chest pain [Unknown]
  - Fatigue [Unknown]
  - Rash [Unknown]
  - Anxiety [Unknown]
  - Abnormal dreams [Recovered/Resolved]
  - Thrombosis [Unknown]
  - Arthralgia [Recovered/Resolved]
